FAERS Safety Report 14243909 (Version 7)
Quarter: 2018Q2

REPORT INFORMATION
  Report Type: Report from Study
  Country: CO (occurrence: CO)
  Receive Date: 20171201
  Receipt Date: 20180622
  Transmission Date: 20180711
  Serious: Yes (Hospitalization, Other)
  Sender: FDA-Public Use
  Company Number: CO-AMGEN-COLSL2016179896

PATIENT
  Age: 75 Year
  Sex: Male
  Weight: 90 kg

DRUGS (5)
  1. NPLATE [Suspect]
     Active Substance: ROMIPLOSTIM
     Indication: IMMUNE THROMBOCYTOPENIC PURPURA
     Dosage: 500 MUG, QWK
     Route: 058
     Dates: start: 20160415
  2. NPLATE [Suspect]
     Active Substance: ROMIPLOSTIM
     Dosage: 500 MUG, QWK
     Route: 058
     Dates: start: 2017
  3. NPLATE [Suspect]
     Active Substance: ROMIPLOSTIM
     Dosage: 250 MUG, QWK
     Route: 058
  4. NPLATE [Suspect]
     Active Substance: ROMIPLOSTIM
     Dosage: 350 MUG, QWK
     Route: 058
     Dates: start: 20170415
  5. NPLATE [Suspect]
     Active Substance: ROMIPLOSTIM
     Dosage: 500 MUG, QWK
     Route: 058
     Dates: start: 20180105

REACTIONS (12)
  - Haemoglobin decreased [Recovering/Resolving]
  - Discomfort [Not Recovered/Not Resolved]
  - Haematocrit decreased [Recovering/Resolving]
  - Influenza [Not Recovered/Not Resolved]
  - Red blood cell count decreased [Recovering/Resolving]
  - Petechiae [Not Recovered/Not Resolved]
  - Oedema peripheral [Not Recovered/Not Resolved]
  - Full blood count abnormal [Recovering/Resolving]
  - Haematoma [Not Recovered/Not Resolved]
  - Urinary tract infection [Not Recovered/Not Resolved]
  - Thrombocytosis [Recovering/Resolving]
  - Thrombocytopenia [Not Recovered/Not Resolved]

NARRATIVE: CASE EVENT DATE: 20161215
